FAERS Safety Report 25246808 (Version 1)
Quarter: 2025Q2

REPORT INFORMATION
  Report Type: Spontaneous
  Country: JP (occurrence: JP)
  Receive Date: 20250428
  Receipt Date: 20250428
  Transmission Date: 20250717
  Serious: Yes (Other)
  Sender: PFIZER
  Company Number: JP-PFIZER INC-202500068541

PATIENT
  Age: 13 Year
  Sex: Male
  Weight: 25 kg

DRUGS (18)
  1. VFEND [Suspect]
     Active Substance: VORICONAZOLE
     Indication: Bronchopulmonary aspergillosis
     Dosage: 9 MG/KG, 2X/DAY
     Route: 042
     Dates: start: 20250130
  2. VFEND [Suspect]
     Active Substance: VORICONAZOLE
     Dosage: 8 MG/KG, 2X/DAY
     Route: 042
     Dates: end: 20250204
  3. DEXAMETHASONE SODIUM PHOSPHATE [Concomitant]
     Active Substance: DEXAMETHASONE SODIUM PHOSPHATE
     Indication: Lymphoma
     Dosage: 8.85 MG, DAILY
     Route: 042
     Dates: start: 20250120
  4. DEXAMETHASONE SODIUM PHOSPHATE [Concomitant]
     Active Substance: DEXAMETHASONE SODIUM PHOSPHATE
     Dosage: 4.257 MG, DAILY
     Route: 042
     Dates: start: 20250121, end: 20250123
  5. DEXAMETHASONE SODIUM PHOSPHATE [Concomitant]
     Active Substance: DEXAMETHASONE SODIUM PHOSPHATE
     Dosage: 2.178 MG, DAILY
     Route: 042
     Dates: start: 20250124, end: 20250126
  6. DEXAMETHASONE SODIUM PHOSPHATE [Concomitant]
     Active Substance: DEXAMETHASONE SODIUM PHOSPHATE
     Dosage: 0.99 MG, DAILY
     Route: 042
     Dates: start: 20250127, end: 20250129
  7. ONCOVIN [Concomitant]
     Active Substance: VINCRISTINE SULFATE
     Indication: Lymphoma
     Dosage: 1.6 MG, DAILY
     Dates: start: 20250121, end: 20250121
  8. ONCOVIN [Concomitant]
     Active Substance: VINCRISTINE SULFATE
     Dosage: 1.6 MG, DAILY
     Dates: start: 20250128, end: 20250128
  9. DOXORUBICIN [Concomitant]
     Active Substance: DOXORUBICIN
     Indication: Lymphoma
     Dosage: 31 MG, DAILY
     Dates: start: 20250121, end: 20250121
  10. DOXORUBICIN [Concomitant]
     Active Substance: DOXORUBICIN
     Dosage: 31 MG, DAILY
     Dates: start: 20250128, end: 20250128
  11. VENOGLOBULIN IH [Concomitant]
     Active Substance: HUMAN IMMUNOGLOBULIN G
     Indication: Hypogammaglobulinaemia
     Dosage: 5 G, DAILY
     Dates: start: 20250124
  12. CEFEPIME [Concomitant]
     Active Substance: CEFEPIME HYDROCHLORIDE
     Indication: Febrile neutropenia
     Dosage: 3.6 G, DAILY
     Dates: start: 20250129
  13. LENOGRASTIM [Concomitant]
     Active Substance: LENOGRASTIM
     Indication: Neutropenia
     Dosage: 125 MG, DAILY
     Dates: start: 20250130
  14. FLUCONAZOLE [Concomitant]
     Active Substance: FLUCONAZOLE
     Indication: Antifungal prophylaxis
     Dosage: EVERY MORNING
     Route: 048
     Dates: start: 20241231
  15. MOVICOL [Concomitant]
     Active Substance: POLYETHYLENE GLYCOL 3350\POTASSIUM CHLORIDE\SODIUM BICARBONATE\SODIUM CHLORIDE
     Indication: Supportive care
     Dosage: 2 PACKAGES EVERY MORNING
     Route: 048
  16. SULFAMETHOXAZOLE\TRIMETHOPRIM [Concomitant]
     Active Substance: SULFAMETHOXAZOLE\TRIMETHOPRIM
     Indication: Supportive care
     Route: 048
  17. FAMOTIDINE [Concomitant]
     Active Substance: FAMOTIDINE
     Indication: Supportive care
     Dosage: 30 MG, 2X/DAY
     Route: 048
     Dates: end: 20250128
  18. BEZAFIBRATE [Concomitant]
     Active Substance: BEZAFIBRATE
     Indication: Supportive care
     Dosage: 150 MG, 2X/DAY
     Route: 048
     Dates: end: 20250123

REACTIONS (6)
  - Psychiatric symptom [Recovered/Resolved]
  - Hallucination, visual [Recovered/Resolved]
  - Delirium [Recovered/Resolved]
  - Abnormal behaviour [Recovered/Resolved]
  - Restlessness [Recovered/Resolved]
  - Photophobia [Unknown]

NARRATIVE: CASE EVENT DATE: 20250201
